FAERS Safety Report 8223515-7 (Version None)
Quarter: 2012Q1

REPORT INFORMATION
  Report Type: 
  Country: None (occurrence: None)
  Receive Date: 20120321
  Receipt Date: 20120319
  Transmission Date: 20120608
  Serious: Yes (Other)
  Sender: FDA-Public Use
  Company Number: US-PFIZER INC-2012071793

PATIENT
  Age: 48 Year
  Sex: Female
  Weight: 61.224 kg

DRUGS (6)
  1. CYMBALTA [Concomitant]
     Indication: DEPRESSION
  2. CYMBALTA [Concomitant]
     Indication: MANIA
  3. ESTRADIOL [Concomitant]
     Indication: MENOPAUSE
     Dosage: 1 MG, DAILY
  4. ACETYLSALICYLIC ACID [Concomitant]
     Dosage: 81 MG, DAILY
  5. CHANTIX [Suspect]
     Indication: SMOKING CESSATION THERAPY
     Dosage: 0.5 MG, UNK
     Route: 048
     Dates: start: 20100101, end: 20100101
  6. CYMBALTA [Concomitant]
     Indication: BIPOLAR DISORDER
     Dosage: 30 MG, DAILY

REACTIONS (2)
  - STRESS [None]
  - SILENT MYOCARDIAL INFARCTION [None]
